FAERS Safety Report 5638462-4 (Version None)
Quarter: 2008Q1

REPORT INFORMATION
  Report Type: 
  Country: None (occurrence: None)
  Receive Date: 20080221
  Receipt Date: 20080221
  Transmission Date: 20080703
  Serious: No
  Sender: FDA-Public Use
  Company Number: None

PATIENT
  Sex: Male
  Weight: 83.9154 kg

DRUGS (2)
  1. LAMISIL [Suspect]
     Dates: start: 20040601, end: 20040801
  2. LAMISIL [Suspect]
     Dates: start: 20050601, end: 20050801

REACTIONS (1)
  - GOITRE [None]
